FAERS Safety Report 6032184-6 (Version None)
Quarter: 2009Q1

REPORT INFORMATION
  Report Type: 
  Country: None (occurrence: None)
  Receive Date: 20090108
  Receipt Date: 20081224
  Transmission Date: 20090719
  Serious: Yes (Other)
  Sender: FDA-Public Use
  Company Number: JP-PFIZER INC-2008154426

PATIENT
  Sex: Male
  Weight: 67.5 kg

DRUGS (8)
  1. CHAMPIX [Suspect]
     Dosage: UNK
     Route: 048
     Dates: start: 20081025, end: 20081203
  2. ANTIHYPERTENSIVES [Concomitant]
     Indication: HYPERTENSION
     Route: 048
  3. NIVADIL [Concomitant]
     Dosage: UNK
     Route: 048
     Dates: start: 20080401
  4. OLMETEC [Concomitant]
     Dosage: UNK
     Route: 048
     Dates: start: 20080401
  5. GASTER [Concomitant]
     Dosage: UNK
     Route: 048
     Dates: start: 20080401
  6. LEXOTAN [Concomitant]
     Dosage: UNK
     Route: 048
     Dates: start: 20080401
  7. AROFUTO [Concomitant]
     Dosage: UNK
     Route: 048
     Dates: start: 20080401
  8. CEROCRAL [Concomitant]
     Dosage: UNK
     Route: 048
     Dates: start: 20080401

REACTIONS (3)
  - HYPERTENSION [None]
  - MUSCULOSKELETAL STIFFNESS [None]
  - NAUSEA [None]
